FAERS Safety Report 15791265 (Version 1)
Quarter: 2019Q1

REPORT INFORMATION
  Report Type: Spontaneous
  Country: US (occurrence: US)
  Receive Date: 20190104
  Receipt Date: 20190104
  Transmission Date: 20190417
  Serious: Yes (Death)
  Sender: FDA-Public Use
  Company Number: US-MYLANLABS-2018M1096942

PATIENT
  Age: 58 Year
  Sex: Male

DRUGS (20)
  1. MYCOPHENOLATE MOFETIL. [Suspect]
     Active Substance: MYCOPHENOLATE MOFETIL
     Dosage: AFTER HEART TRANSPLANTATION
     Route: 065
  2. SULFAMETHOXAZOLE AND TRIMETHOPRIM [Concomitant]
     Active Substance: SULFAMETHOXAZOLE\TRIMETHOPRIM
     Indication: PROPHYLAXIS AGAINST TRANSPLANT REJECTION
     Dosage: STARTED ON POSTOPERATIVE DAY 1
     Route: 065
  3. NYSTATIN. [Concomitant]
     Active Substance: NYSTATIN
     Indication: PROPHYLAXIS AGAINST TRANSPLANT REJECTION
     Dosage: STARTED ON POSTOPERATIVE DAY 1
     Route: 065
  4. MYCOPHENOLATE MOFETIL. [Suspect]
     Active Substance: MYCOPHENOLATE MOFETIL
     Indication: IMMUNOSUPPRESSANT DRUG THERAPY
     Dosage: INDUCTION IMMUNOSUPPRESSION, INTRA-OPERATIVELY, WHICH WAS CONTINUED AFTER THE TRANSPLANTATION
     Route: 065
  5. VANCOMYCIN [Concomitant]
     Active Substance: VANCOMYCIN
     Indication: PROPHYLAXIS AGAINST TRANSPLANT REJECTION
     Dosage: ADMINISTERED AT THE TIME OF TRANSPLANTATION, AND LATER FOLLOWING PRESUMPTION OF HEALTHCARE-ASSOCI...
     Route: 042
  6. MEROPENEM. [Concomitant]
     Active Substance: MEROPENEM
     Indication: PNEUMONIA
     Route: 065
  7. LEVOFLOXACIN. [Concomitant]
     Active Substance: LEVOFLOXACIN
     Indication: PNEUMONIA
     Route: 065
  8. PREDNISONE. [Suspect]
     Active Substance: PREDNISONE
     Indication: IMMUNOSUPPRESSANT DRUG THERAPY
     Dosage: AFTER HEART TRANSPLANTATION
     Route: 065
  9. METHYLPREDNISOLONE. [Suspect]
     Active Substance: METHYLPREDNISOLONE
     Indication: IMMUNOSUPPRESSANT DRUG THERAPY
     Dosage: INDUCTION IMMUNOSUPPRESSION, INTRA-OPERATIVELY, WHICH WAS GIVEN LATER AGAIN FOLLOWING PRESUMPTION...
     Route: 065
  10. INSULIN [Concomitant]
     Active Substance: INSULIN NOS
     Indication: DIABETES MELLITUS INADEQUATE CONTROL
     Route: 065
  11. TACROLIMUS. [Suspect]
     Active Substance: TACROLIMUS
     Indication: IMMUNOSUPPRESSANT DRUG THERAPY
     Dosage: INDUCTION IMMUNOSUPPRESSION, FROM DAY 2 POST-OPERATIVELY, WHICH WAS CONTINUED AFTER THE TRANSPLAN...
     Route: 065
  12. VANCOMYCIN [Concomitant]
     Active Substance: VANCOMYCIN
     Dosage: UNK
     Route: 065
  13. VALGANCICLOVIR. [Concomitant]
     Active Substance: VALGANCICLOVIR
     Indication: PROPHYLAXIS AGAINST TRANSPLANT REJECTION
     Dosage: STARTED ON POSTOPERATIVE DAY 1
     Route: 065
  14. ASPIRIN                            /00002701/ [Concomitant]
     Active Substance: ASPIRIN
     Indication: PRODUCT USED FOR UNKNOWN INDICATION
     Route: 065
  15. METHYLPREDNISOLONE. [Suspect]
     Active Substance: METHYLPREDNISOLONE
     Dosage: FOLLOWING PRESUMPTION OF POSSIBLE GRAFT REJECTION
     Route: 065
  16. ANTITHYMOCYTE IMMUNOGLOBULIN [Suspect]
     Active Substance: THYMOCYTE IMMUNE GLOBULIN NOS
     Indication: TRANSPLANT REJECTION
     Route: 065
  17. CEFAZOLIN [Concomitant]
     Active Substance: CEFAZOLIN
     Indication: PROPHYLAXIS AGAINST TRANSPLANT REJECTION
     Dosage: ADMINISTERED AT THE TIME OF TRANSPLANTATION
     Route: 065
  18. PRAVASTATIN. [Concomitant]
     Active Substance: PRAVASTATIN
     Indication: PRODUCT USED FOR UNKNOWN INDICATION
     Route: 065
  19. VORICONAZOLE. [Concomitant]
     Active Substance: VORICONAZOLE
     Indication: ANTIFUNGAL TREATMENT
     Route: 065
  20. TACROLIMUS. [Suspect]
     Active Substance: TACROLIMUS
     Dosage: AFTER HEART TRANSPLANTATION
     Route: 065

REACTIONS (17)
  - Myocarditis infectious [Fatal]
  - Gastritis fungal [Fatal]
  - Infectious thyroiditis [Fatal]
  - Intraventricular haemorrhage [Fatal]
  - Mucormycosis [Fatal]
  - Pneumonia fungal [Fatal]
  - Cardiogenic shock [Fatal]
  - Subarachnoid haemorrhage [Fatal]
  - Respiratory tract haemorrhage [Fatal]
  - Bundle branch block right [Fatal]
  - Brain herniation [Fatal]
  - Pleural infection [Fatal]
  - Pericarditis fungal [Fatal]
  - Hepatic infection fungal [Fatal]
  - Electrocardiogram ST segment depression [Fatal]
  - Sinus tachycardia [Fatal]
  - Respiratory failure [Fatal]
